FAERS Safety Report 17646934 (Version 1)
Quarter: 2020Q2

REPORT INFORMATION
  Report Type: Spontaneous
  Country: DE (occurrence: DE)
  Receive Date: 20200408
  Receipt Date: 20200408
  Transmission Date: 20200713
  Serious: Yes (Other)
  Sender: FDA-Public Use
  Company Number: DE-PFIZER INC-2020140793

PATIENT
  Age: 28 Year
  Sex: Female
  Weight: 65 kg

DRUGS (1)
  1. CYTOTEC [Suspect]
     Active Substance: MISOPROSTOL
     Indication: LABOUR INDUCTION
     Dosage: UNK
     Route: 048
     Dates: start: 20160704, end: 20160704

REACTIONS (6)
  - Off label use [Unknown]
  - Haemorrhage [Recovered/Resolved with Sequelae]
  - Product use in unapproved indication [Unknown]
  - Birth trauma [Recovered/Resolved with Sequelae]
  - Pain [Unknown]
  - Uterine hypertonus [Recovered/Resolved with Sequelae]

NARRATIVE: CASE EVENT DATE: 20160704
